FAERS Safety Report 6539181-2 (Version None)
Quarter: 2010Q1

REPORT INFORMATION
  Report Type: 
  Country: None (occurrence: None)
  Receive Date: 20100115
  Receipt Date: 20100105
  Transmission Date: 20100710
  Serious: Yes (Death, Hospitalization)
  Sender: FDA-Public Use
  Company Number: US-JNJFOC-20100102432

PATIENT
  Age: 74 Year
  Sex: Male
  Weight: 88.45 kg

DRUGS (5)
  1. TYLENOL (CAPLET) [Suspect]
     Indication: HERPES ZOSTER
     Dosage: AS NEEDED
     Route: 048
  2. TYLENOL (CAPLET) [Suspect]
     Dosage: ^REGULARLY^
     Route: 048
  3. TYLENOL (CAPLET) [Suspect]
     Indication: ARTHRALGIA
     Dosage: ^REGULARLY^
     Route: 048
  4. TYLENOL (CAPLET) [Suspect]
     Dosage: AS NEEDED
     Route: 048
  5. ANTIBIOTIC [Concomitant]
     Indication: HERPES ZOSTER

REACTIONS (7)
  - ABDOMINAL DISCOMFORT [None]
  - DECREASED APPETITE [None]
  - DIARRHOEA [None]
  - ENCEPHALITIS HERPES [None]
  - NAUSEA [None]
  - PRODUCT QUALITY ISSUE [None]
  - VOMITING [None]
